FAERS Safety Report 20323930 (Version 2)
Quarter: 2022Q1

REPORT INFORMATION
  Report Type: Report from Study
  Country: US (occurrence: US)
  Receive Date: 20220111
  Receipt Date: 20220119
  Transmission Date: 20220424
  Serious: Yes (Hospitalization)
  Sender: FDA-Public Use
  Company Number: US-PFIZER INC-202101884321

PATIENT
  Age: 58 Year
  Sex: Male
  Weight: 82.4 kg

DRUGS (3)
  1. TALAZOPARIB [Suspect]
     Active Substance: TALAZOPARIB
     Indication: Pancreatic carcinoma metastatic
     Dosage: 250 UG, CYCLIC (ON DAYS 1-7, CYCLE = 21 DAYS) TOTAL DOSE ADMINISTERED THIS COURSE 1250 MG
     Route: 048
     Dates: start: 20151222, end: 20151227
  2. CARBOPLATIN [Suspect]
     Active Substance: CARBOPLATIN
     Indication: Pancreatic carcinoma metastatic
     Dosage: AUC 5 OVER 30 MIN ON DAY 1, CYCLE = 21 DAYS, TOTAL DOSE ADMINISTERED THIS COURSE 650 MG
     Route: 042
     Dates: start: 20151222
  3. TAXOL [Suspect]
     Active Substance: PACLITAXEL
     Indication: Pancreatic carcinoma metastatic
     Dosage: 80 MG/M2, CYCLIC (OVER 1 HR ON DAYS 1, 8 AND 15, CYCLE = 21 DAYS) TOTAL DOSE ADMINISTERED THIS COURS
     Route: 042
     Dates: start: 20151222

REACTIONS (1)
  - Pyrexia [Recovered/Resolved]

NARRATIVE: CASE EVENT DATE: 20151225
